FAERS Safety Report 20034014 (Version 1)
Quarter: 2021Q4

REPORT INFORMATION
  Report Type: Spontaneous
  Country: US (occurrence: US)
  Receive Date: 20211104
  Receipt Date: 20211104
  Transmission Date: 20220303
  Serious: No
  Sender: FDA-Public Use
  Company Number: US-PERRIGO-21US001340

PATIENT
  Sex: Female

DRUGS (1)
  1. UNISOM SLEEPTABS [Suspect]
     Active Substance: DOXYLAMINE SUCCINATE
     Indication: Insomnia
     Dosage: UNKNOWN, NIGHTLY
     Route: 048
     Dates: end: 20210123

REACTIONS (3)
  - Abnormal dreams [Unknown]
  - Sinusitis [Unknown]
  - Incorrect product administration duration [Recovered/Resolved]
